FAERS Safety Report 25542743 (Version 2)
Quarter: 2025Q3

REPORT INFORMATION
  Report Type: Report from Study
  Country: VN (occurrence: VN)
  Receive Date: 20250711
  Receipt Date: 20250725
  Transmission Date: 20251021
  Serious: Yes (Death)
  Sender: ROCHE
  Company Number: VN-ROCHE-10000334493

PATIENT
  Age: 43 Year
  Sex: Female

DRUGS (1)
  1. ALECENSA [Suspect]
     Active Substance: ALECTINIB HYDROCHLORIDE
     Indication: Non-small cell lung cancer metastatic
     Route: 065
     Dates: start: 20240124, end: 202501

REACTIONS (1)
  - Death [Fatal]
